FAERS Safety Report 24200736 (Version 1)
Quarter: 2024Q3

REPORT INFORMATION
  Report Type: Spontaneous
  Country: US (occurrence: None)
  Receive Date: 20240810
  Receipt Date: 20240810
  Transmission Date: 20241017
  Serious: No
  Sender: Public
  Company Number: None

PATIENT
  Age: 56 Year
  Sex: Female
  Weight: 42.75 kg

DRUGS (3)
  1. VUEWAY [Suspect]
     Active Substance: GADOPICLENOL
     Indication: Scan with contrast
     Dates: start: 20240717, end: 20240717
  2. VUEWAY [Suspect]
     Active Substance: GADOPICLENOL
     Indication: Magnetic resonance imaging
  3. psyllium husk fiber [Concomitant]

REACTIONS (6)
  - Pruritus [None]
  - Rash [None]
  - Pruritus [None]
  - Rash [None]
  - Rash maculo-papular [None]
  - Contrast media reaction [None]

NARRATIVE: CASE EVENT DATE: 20240723
